FAERS Safety Report 7286279-X (Version None)
Quarter: 2011Q1

REPORT INFORMATION
  Report Type: 
  Country: None (occurrence: None)
  Receive Date: 20110210
  Receipt Date: 20110203
  Transmission Date: 20110831
  Serious: Yes (Hospitalization, Other)
  Sender: FDA-Public Use
  Company Number: PHHY2010US67046

PATIENT
  Sex: Female

DRUGS (3)
  1. TYLENOL-500 [Concomitant]
  2. EXTAVIA [Suspect]
     Indication: MULTIPLE SCLEROSIS
     Dosage: 0.25 MG, QOD
     Route: 058
     Dates: start: 20100304
  3. AUGMENTIN '125' [Concomitant]
     Dosage: 250 MG, BID

REACTIONS (9)
  - UPPER RESPIRATORY TRACT INFECTION [None]
  - INJECTION SITE ERYTHEMA [None]
  - INJECTION SITE RASH [None]
  - OROPHARYNGEAL PAIN [None]
  - DEPRESSION [None]
  - BRONCHITIS [None]
  - EAR INFECTION [None]
  - INJECTION SITE PAIN [None]
  - FATIGUE [None]
